FAERS Safety Report 7110311-7 (Version None)
Quarter: 2010Q4

REPORT INFORMATION
  Report Type: 
  Country: None (occurrence: None)
  Receive Date: 20101118
  Receipt Date: 20100811
  Transmission Date: 20110411
  Serious: No
  Sender: FDA-Public Use
  Company Number: A0875193A

PATIENT
  Sex: Male

DRUGS (1)
  1. COREG CR [Suspect]
     Dosage: 40MG PER DAY
     Route: 048

REACTIONS (2)
  - BLOOD PRESSURE INCREASED [None]
  - DRUG INEFFECTIVE [None]
